FAERS Safety Report 6783478-8 (Version None)
Quarter: 2010Q2

REPORT INFORMATION
  Report Type: 
  Country: None (occurrence: None)
  Receive Date: 20100618
  Receipt Date: 20100610
  Transmission Date: 20101027
  Serious: No
  Sender: FDA-Public Use
  Company Number: 2010AL003444

PATIENT
  Sex: Female

DRUGS (1)
  1. TRIAMCINOLONE ACETONIDE [Suspect]
     Indication: PRURITUS
     Dosage: 0.1 PCT; TOP
     Route: 061
     Dates: start: 20060101

REACTIONS (8)
  - BREAST CANCER FEMALE [None]
  - DEPRESSION [None]
  - KELOID SCAR [None]
  - POST PROCEDURAL COMPLICATION [None]
  - PRURITUS [None]
  - SKIN DISCOLOURATION [None]
  - SKIN INFECTION [None]
  - SLEEP DISORDER [None]
